FAERS Safety Report 8216633-0 (Version None)
Quarter: 2012Q1

REPORT INFORMATION
  Report Type: 
  Country: None (occurrence: None)
  Receive Date: 20120316
  Receipt Date: 20120217
  Transmission Date: 20120608
  Serious: No
  Sender: FDA-Public Use
  Company Number: US-PFIZER INC-2012046572

PATIENT
  Sex: Female

DRUGS (1)
  1. NORGESTREL AND ETHINYL ESTRADIOL [Suspect]
     Indication: CONTRACEPTION
     Dosage: UNK

REACTIONS (4)
  - DRUG INEFFECTIVE [None]
  - JOINT INJURY [None]
  - FALL [None]
  - UNINTENDED PREGNANCY [None]
